FAERS Safety Report 9415281 (Version 1)
Quarter: 2013Q3

REPORT INFORMATION
  Report Type: Spontaneous
  Country: US (occurrence: US)
  Receive Date: 20130723
  Receipt Date: 20130723
  Transmission Date: 20140515
  Serious: Yes (Other)
  Sender: FDA-Public Use
  Company Number: US-PFIZER INC-2013210894

PATIENT
  Sex: Female

DRUGS (2)
  1. PREMARIN [Suspect]
     Dosage: UNK
     Route: 067
  2. PREMARIN [Suspect]
     Dosage: UNK
     Route: 067
     Dates: start: 201212

REACTIONS (2)
  - Glaucoma [Unknown]
  - Liver disorder [Unknown]
